FAERS Safety Report 10918818 (Version 1)
Quarter: 2015Q1

REPORT INFORMATION
  Report Type: Spontaneous
  Country: US (occurrence: US)
  Receive Date: 20150316
  Receipt Date: 20150316
  Transmission Date: 20150721
  Serious: No
  Sender: FDA-Public Use
  Company Number: US-ASTELLAS-2015US001840

PATIENT
  Age: 86 Year
  Sex: Male

DRUGS (3)
  1. XTANDI [Suspect]
     Active Substance: ENZALUTAMIDE
     Indication: PROSTATE CANCER
     Route: 048
     Dates: start: 201410
  2. CASODEX [Suspect]
     Active Substance: BICALUTAMIDE
     Indication: PRODUCT USED FOR UNKNOWN INDICATION
     Dosage: UNK, UNKNOWN FREQ.
     Route: 065
     Dates: start: 201306, end: 201311
  3. XTANDI [Suspect]
     Active Substance: ENZALUTAMIDE
     Route: 048
     Dates: end: 20150113

REACTIONS (8)
  - Decreased appetite [Unknown]
  - Arthralgia [Unknown]
  - Hypersomnia [Unknown]
  - Back pain [Unknown]
  - Fatigue [Unknown]
  - Dysphagia [Unknown]
  - Incorrect dose administered [Unknown]
  - Night sweats [Unknown]

NARRATIVE: CASE EVENT DATE: 20140926
